FAERS Safety Report 8766509 (Version 1)
Quarter: 2012Q4

REPORT INFORMATION
  Report Type: 
  Country: US (occurrence: US)
  Receive Date: 20120905
  Receipt Date: 20120905
  Transmission Date: 20130627
  Serious: Yes (Hospitalization)
  Sender: FDA-Public Use
  Company Number: US-ASTRAZENECA-2012SE05381

PATIENT
  Age: 52 Year
  Sex: Male
  Weight: 77.1 kg

DRUGS (10)
  1. SEROQUEL [Suspect]
     Indication: BIPOLAR DISORDER
     Route: 048
     Dates: start: 2009
  2. GLUCOSAMINE [Concomitant]
     Indication: ARTHROPATHY
     Route: 048
  3. CELEXA [Concomitant]
     Indication: NERVE INJURY
     Route: 048
  4. TYLENOL 4 [Concomitant]
     Indication: PAIN
     Route: 048
  5. SIMVASTATIN [Concomitant]
     Indication: BLOOD CHOLESTEROL ABNORMAL
     Route: 048
  6. DIAZEPAM [Concomitant]
     Indication: NERVE INJURY
     Route: 048
  7. PLAVIX [Concomitant]
     Indication: ANTICOAGULANT THERAPY
     Route: 048
  8. STOOL SOFTENER [Concomitant]
     Indication: ABDOMINAL DISCOMFORT
     Route: 048
  9. STOOL SOFTENER [Concomitant]
     Indication: ABDOMINAL DISCOMFORT
     Route: 048
  10. TRIAZODONE [Concomitant]
     Indication: SLEEP DISORDER
     Route: 048

REACTIONS (2)
  - Myocardial infarction [Recovering/Resolving]
  - Muscle spasms [Unknown]
